FAERS Safety Report 13030736 (Version 2)
Quarter: 2017Q1

REPORT INFORMATION
  Report Type: Spontaneous
  Country: DE (occurrence: DE)
  Receive Date: 20161215
  Receipt Date: 20170222
  Transmission Date: 20170428
  Serious: Yes (Life-Threatening, Other)
  Sender: FDA-Public Use
  Company Number: DE-CELLTRION INC.-2016DE012885

PATIENT

DRUGS (2)
  1. INFLIXIMAB HOSPIRA [Suspect]
     Active Substance: INFLIXIMAB
     Dosage: UNK
     Dates: start: 2015, end: 201509
  2. INFLIXIMAB HOSPIRA [Suspect]
     Active Substance: INFLIXIMAB
     Indication: PRODUCT USED FOR UNKNOWN INDICATION
     Dosage: UNK STARTED WITH AN INDUCTION REGIMEN (WEEKS 0, 2, AND 6) FOLLOWED BY MAINTENANCE IN JULY/AUGUST
     Route: 041

REACTIONS (2)
  - Pulmonary fibrosis [Not Recovered/Not Resolved]
  - Acute respiratory distress syndrome [Recovering/Resolving]
